FAERS Safety Report 17118393 (Version 1)
Quarter: 2019Q4

REPORT INFORMATION
  Report Type: Spontaneous
  Country: CN (occurrence: CN)
  Receive Date: 20191205
  Receipt Date: 20191205
  Transmission Date: 20200122
  Serious: Yes (Disabling)
  Sender: FDA-Public Use
  Company Number: CN-SA-2019SA333899

PATIENT
  Age: 68 Year
  Sex: Female
  Weight: 66 kg

DRUGS (6)
  1. ACETYLSALICYLIC ACID [Suspect]
     Active Substance: ASPIRIN
     Indication: PLATELET AGGREGATION INHIBITION
     Dosage: 100 MG, QD
     Route: 048
     Dates: start: 20191021, end: 20191112
  2. MOUSE NERVE GROWTH FACTOR FOR INJECTION [Concomitant]
     Indication: NERVE INJURY
     Dosage: 30 UG, QD
     Route: 042
     Dates: start: 20191021, end: 20191112
  3. EXTRACT OF GINKGO BILOBA LEAVES [Concomitant]
     Indication: CARDIOVASCULAR INSUFFICIENCY
     Dosage: 52 MG, QD
     Route: 041
     Dates: start: 20191021, end: 20191111
  4. ATORVASTATIN CALCIUM. [Suspect]
     Active Substance: ATORVASTATIN CALCIUM
     Indication: LIPIDS
     Dosage: 20 MG, QD
     Route: 048
     Dates: start: 20191021, end: 20191111
  5. IRBESARTAN. [Suspect]
     Active Substance: IRBESARTAN
     Indication: BLOOD PRESSURE MEASUREMENT
     Dosage: 0.15 G, QD
     Route: 048
     Dates: start: 20191021, end: 20191112
  6. SODIUM CHLORIDE. [Concomitant]
     Active Substance: SODIUM CHLORIDE
     Indication: MEDICATION DILUTION
     Dosage: 250 ML, QD
     Route: 041
     Dates: start: 20191021, end: 20191111

REACTIONS (7)
  - Blood bilirubin increased [Unknown]
  - Total bile acids increased [Unknown]
  - Ocular icterus [Unknown]
  - Aspartate aminotransferase increased [Unknown]
  - Alanine aminotransferase increased [Unknown]
  - Gamma-glutamyltransferase increased [Unknown]
  - Blood alkaline phosphatase increased [Unknown]

NARRATIVE: CASE EVENT DATE: 20191022
